FAERS Safety Report 20176033 (Version 3)
Quarter: 2021Q4

REPORT INFORMATION
  Report Type: Report from Study
  Country: ES (occurrence: None)
  Receive Date: 20211213
  Receipt Date: 20211221
  Transmission Date: 20220303
  Serious: Yes (Death)
  Sender: FDA-Public Use
  Company Number: ES-ROCHE-2978833

PATIENT
  Age: 62 Year
  Sex: Female
  Weight: 63 kg

DRUGS (13)
  1. ATEZOLIZUMAB [Suspect]
     Active Substance: ATEZOLIZUMAB
     Indication: Metastatic neoplasm
     Dosage: MOST RECENT DOSE OF STUDY DRUG PRIOR TO AE/SAE: 24/AUG/2020, 1200 MG
     Route: 042
     Dates: start: 20200722
  2. TIRAGOLUMAB [Suspect]
     Active Substance: TIRAGOLUMAB
     Indication: Metastatic neoplasm
     Dosage: MOST RECENT DOSE OF STUDY DRUG PRIOR TO AE/SAE: 24/AUG/2020, 600 MG
     Route: 042
     Dates: start: 20200722
  3. IBUPROFEN [Concomitant]
     Active Substance: IBUPROFEN
     Indication: Abdominal pain
     Dosage: YES
     Route: 048
     Dates: start: 20200709
  4. ACETAMINOPHEN [Concomitant]
     Active Substance: ACETAMINOPHEN
     Indication: Abdominal pain
     Dosage: YES
     Route: 048
     Dates: start: 20200723
  5. LORAZEPAM [Concomitant]
     Active Substance: LORAZEPAM
     Indication: Prophylaxis
     Dosage: GIVEN FOR PROPHYLAXIS IS YES ;ONGOING: YES
     Route: 048
     Dates: start: 20200723
  6. CASENLAX [Concomitant]
     Indication: Constipation
     Dosage: YES
     Route: 048
     Dates: start: 20200812
  7. DULCO LAXO [Concomitant]
     Indication: Constipation
     Dosage: YES
     Route: 048
     Dates: start: 20200812
  8. METOCLOPRAMIDE HYDROCHLORIDE [Concomitant]
     Active Substance: METOCLOPRAMIDE HYDROCHLORIDE
     Indication: Abdominal pain
     Dosage: YES
     Route: 048
     Dates: start: 20200812
  9. PANTOPRAZOLE [Concomitant]
     Active Substance: PANTOPRAZOLE
     Indication: Prophylaxis
     Dosage: GIVEN FOR PROPHYLAXIS IS YES ;ONGOING: YES
     Route: 048
     Dates: start: 20200816
  10. MORPHINE [Concomitant]
     Active Substance: MORPHINE
     Indication: Abdominal pain
     Dosage: YES
     Route: 048
     Dates: start: 20200817
  11. AZTREONAM [Concomitant]
     Active Substance: AZTREONAM
     Indication: Cholangitis acute
     Dosage: YES
     Route: 042
     Dates: start: 20200903
  12. VANCOMYCIN [Concomitant]
     Active Substance: VANCOMYCIN
     Indication: Cholangitis acute
     Dosage: YES
     Route: 042
     Dates: start: 20200903
  13. HIBOR [Concomitant]
     Indication: Thrombosis prophylaxis
     Dosage: GIVEN FOR PROPHYLAXIS IS YES ;ONGOING: YES
     Route: 058
     Dates: start: 20200903

REACTIONS (1)
  - Malignant neoplasm progression [Fatal]

NARRATIVE: CASE EVENT DATE: 20201012
